FAERS Safety Report 20323843 (Version 1)
Quarter: 2022Q1

REPORT INFORMATION
  Report Type: Spontaneous
  Country: US (occurrence: US)
  Receive Date: 20220111
  Receipt Date: 20220111
  Transmission Date: 20220423
  Serious: Yes (Death, Other)
  Sender: FDA-Public Use
  Company Number: US-AMGEN-USASP2022001681

PATIENT

DRUGS (4)
  1. CARFILZOMIB [Suspect]
     Active Substance: CARFILZOMIB
     Indication: Plasma cell myeloma
     Dosage: UNK 20/27 MILLIGRAM/SQ. METER ON DAYS 1,2,8,9,15,16
     Route: 042
  2. LENALIDOMIDE [Suspect]
     Active Substance: LENALIDOMIDE
     Indication: Plasma cell myeloma
     Dosage: 25 MILLIGRAM, QD ON DAYS 1-21 15 MG OR LAST TOLERATED DOSE ORAL ON DAYS 1-21
     Route: 048
  3. DEXAMETHASONE [Suspect]
     Active Substance: DEXAMETHASONE
     Indication: Plasma cell myeloma
     Dosage: UNK 28 MG ORAL AND 8 MG IV ONCE WEEKLY ON DAYS 1,8,15, 22
     Route: 048
  4. ELOTUZUMAB [Suspect]
     Active Substance: ELOTUZUMAB
     Indication: Plasma cell myeloma
     Dosage: 10 MG/KG IV ONCE WEEKLY ON DAYS 1,8,15, 22, EVERY 2 WEEKS ON DAYS 1,15
     Route: 042

REACTIONS (10)
  - Death [Fatal]
  - Renal cell carcinoma [Unknown]
  - Embolism [Unknown]
  - Infection [Unknown]
  - Fatigue [Unknown]
  - Neutropenia [Unknown]
  - Plasma cell myeloma [Unknown]
  - Hypophosphataemia [Unknown]
  - Thrombocytopenia [Unknown]
  - Off label use [Unknown]
